FAERS Safety Report 12492078 (Version 1)
Quarter: 2016Q2

REPORT INFORMATION
  Report Type: Spontaneous
  Country: FR (occurrence: FR)
  Receive Date: 20160623
  Receipt Date: 20160623
  Transmission Date: 20160815
  Serious: Yes (Hospitalization)
  Sender: FDA-Public Use
  Company Number: FR-009507513-1606FRA007906

PATIENT
  Age: 47 Year
  Sex: Male

DRUGS (3)
  1. CRIXIVAN [Suspect]
     Active Substance: INDINAVIR SULFATE
     Indication: HIV TEST POSITIVE
     Dosage: 2 DF, TID
     Route: 048
     Dates: start: 1996, end: 20160605
  2. COMBIVIR [Suspect]
     Active Substance: LAMIVUDINE\ZIDOVUDINE
     Indication: HIV INFECTION
     Dosage: 2 DF, QD
     Route: 048
     Dates: start: 1996, end: 20160605
  3. DEPAMIDE [Suspect]
     Active Substance: VALPROMIDE
     Indication: DELIRIUM
     Dosage: 1 TABLET AM 2 TABLETS PM
     Route: 048
     Dates: start: 201603, end: 20160605

REACTIONS (1)
  - Anaemia macrocytic [Recovering/Resolving]

NARRATIVE: CASE EVENT DATE: 20160602
